FAERS Safety Report 10224445 (Version 1)
Quarter: 2014Q2

REPORT INFORMATION
  Report Type: Spontaneous
  Country: US (occurrence: US)
  Receive Date: 20140609
  Receipt Date: 20140609
  Transmission Date: 20141212
  Serious: No
  Sender: FDA-Public Use
  Company Number: US-BAYER-2014-085283

PATIENT
  Sex: Female
  Weight: 58.96 kg

DRUGS (1)
  1. ALEVE CAPLET [Suspect]
     Indication: ANALGESIC THERAPY
     Dosage: 1-2 DF, PRN
     Route: 048
     Dates: start: 20140604

REACTIONS (1)
  - Incorrect dose administered [None]
